FAERS Safety Report 6500741-6 (Version None)
Quarter: 2009Q4

REPORT INFORMATION
  Report Type: 
  Country: None (occurrence: None)
  Receive Date: 20091216
  Receipt Date: 20090202
  Transmission Date: 20100525
  Serious: No
  Sender: FDA-Public Use
  Company Number: A0766243A

PATIENT
  Age: 69 Year
  Sex: Female

DRUGS (1)
  1. NICOTINE POLACRILEX [Suspect]
     Indication: SMOKING CESSATION THERAPY
     Dates: start: 20090127, end: 20090127

REACTIONS (2)
  - FEELING ABNORMAL [None]
  - NAUSEA [None]
